FAERS Safety Report 7970508-0 (Version None)
Quarter: 2011Q4

REPORT INFORMATION
  Report Type: 
  Country: None (occurrence: None)
  Receive Date: 20111212
  Receipt Date: 20110119
  Transmission Date: 20120403
  Serious: No
  Sender: FDA-Public Use
  Company Number: US-ABBOTT-11P-163-0700310-00

PATIENT
  Sex: Male
  Weight: 73.548 kg

DRUGS (5)
  1. ELAVIL [Concomitant]
     Indication: PRODUCT USED FOR UNKNOWN INDICATION
  2. ZANAFLEX [Concomitant]
     Indication: PRODUCT USED FOR UNKNOWN INDICATION
  3. VICODIN ES [Suspect]
     Indication: PAIN
     Dosage: 7.5/750MG AS NEEDED
     Route: 048
     Dates: start: 20100801
  4. ZANTAC [Concomitant]
     Indication: PRODUCT USED FOR UNKNOWN INDICATION
  5. OXYCONTIN [Concomitant]
     Indication: PAIN

REACTIONS (1)
  - DRUG INEFFECTIVE [None]
